FAERS Safety Report 8283227-0 (Version None)
Quarter: 2012Q2

REPORT INFORMATION
  Report Type: 
  Country: None (occurrence: None)
  Receive Date: 20120413
  Receipt Date: 20120410
  Transmission Date: 20120825
  Serious: Yes (Hospitalization, Other)
  Sender: FDA-Public Use
  Company Number: US-MERCK-1201USA02868

PATIENT
  Age: 53 Year
  Sex: Male

DRUGS (5)
  1. METFORMIN HCL [Suspect]
     Route: 065
  2. JANUVIA [Suspect]
     Indication: TYPE 2 DIABETES MELLITUS
     Route: 048
  3. JANUVIA [Suspect]
     Route: 048
     Dates: start: 20110701
  4. AMARYL [Suspect]
     Indication: TYPE 2 DIABETES MELLITUS
     Route: 048
  5. AMARYL [Suspect]
     Route: 048
     Dates: start: 20110801

REACTIONS (5)
  - BLOOD CREATININE INCREASED [None]
  - DIABETES MELLITUS INADEQUATE CONTROL [None]
  - MYOCARDIAL INFARCTION [None]
  - KIDNEY INFECTION [None]
  - STAPHYLOCOCCAL INFECTION [None]
